FAERS Safety Report 8314575-3 (Version None)
Quarter: 2012Q1

REPORT INFORMATION
  Report Type: 
  Country: None (occurrence: None)
  Receive Date: 20120315
  Receipt Date: 20110601
  Transmission Date: 20120608
  Serious: Yes (Other)
  Sender: FDA-Public Use
  Company Number: PHHY2011US40758

PATIENT
  Age: 44 Year
  Sex: Male
  Weight: 81.6 kg

DRUGS (1)
  1. GILENYA [Suspect]
     Indication: RELAPSING-REMITTING MULTIPLE SCLEROSIS
     Dosage: 0.5 MG, QD, ORAL 0.5 MG, QD, ORAL
     Route: 048
     Dates: start: 20110511, end: 20110519

REACTIONS (7)
  - CHEST PAIN [None]
  - VISION BLURRED [None]
  - HEADACHE [None]
  - BRADYCARDIA [None]
  - DYSPNOEA [None]
  - NAUSEA [None]
  - DIARRHOEA [None]
